FAERS Safety Report 18813848 (Version 2)
Quarter: 2021Q1

REPORT INFORMATION
  Report Type: Spontaneous
  Country: NL (occurrence: NL)
  Receive Date: 20210201
  Receipt Date: 20210316
  Transmission Date: 20210419
  Serious: Yes (Death)
  Sender: FDA-Public Use
  Company Number: NL-ROCHE-2759754

PATIENT
  Sex: Male

DRUGS (4)
  1. DEXAMETHASONE. [Concomitant]
     Active Substance: DEXAMETHASONE
     Indication: BRAIN OEDEMA
     Route: 048
  2. PARACETAMOL [Concomitant]
     Active Substance: ACETAMINOPHEN
     Indication: PAIN
     Route: 048
     Dates: start: 20191219
  3. ZELBORAF [Suspect]
     Active Substance: VEMURAFENIB
     Indication: METASTATIC MALIGNANT MELANOMA
     Route: 048
     Dates: start: 20210121
  4. COTELLIC [Suspect]
     Active Substance: COBIMETINIB
     Indication: METASTATIC MALIGNANT MELANOMA
     Route: 048
     Dates: start: 20210131, end: 20210221

REACTIONS (10)
  - Investigation abnormal [Fatal]
  - Aspiration [Fatal]
  - Foaming at mouth [Fatal]
  - Tachycardia [Fatal]
  - Cerebrovascular accident [Fatal]
  - Hypertension [Fatal]
  - Seizure [Fatal]
  - Wrong technique in product usage process [Fatal]
  - Loss of consciousness [Fatal]
  - Death [Fatal]
